FAERS Safety Report 10196296 (Version 3)
Quarter: 2014Q2

REPORT INFORMATION
  Report Type: Spontaneous
  Country: JP (occurrence: JP)
  Receive Date: 20140527
  Receipt Date: 20140624
  Transmission Date: 20141212
  Serious: Yes (Other)
  Sender: FDA-Public Use
  Company Number: JP-JNJFOC-20140514610

PATIENT
  Age: 45 Year
  Sex: Female

DRUGS (8)
  1. TRAMCET [Suspect]
     Indication: PAIN
     Route: 048
  2. TRAMCET [Suspect]
     Indication: PAIN
     Dosage: ONCE A DAY
     Route: 048
     Dates: start: 20140515, end: 20140515
  3. REMERON [Interacting]
     Indication: DEPRESSION
     Dosage: ONCE A DAY
     Route: 048
     Dates: end: 201405
  4. NOVAMIN [Concomitant]
     Indication: PROPHYLAXIS OF NAUSEA AND VOMITING
     Dosage: ONCE A DAY
     Route: 048
     Dates: start: 20140515, end: 20140515
  5. BIOFERMIN [Concomitant]
     Indication: PROPHYLAXIS
     Dosage: ONCE A DAY
     Route: 048
  6. FLUTIFORM [Concomitant]
     Indication: ASTHMA
     Dosage: TWICE A DAY
     Route: 055
  7. SWORD [Concomitant]
     Indication: WOUND INFECTION
     Dosage: ONCE A DAY
     Route: 048
     Dates: start: 20140509
  8. BAKTAR [Concomitant]
     Indication: WOUND INFECTION
     Dosage: ONCE A DAY
     Route: 048
     Dates: start: 20140513

REACTIONS (4)
  - Loss of consciousness [Recovered/Resolved]
  - Drug interaction [Unknown]
  - Malaise [Unknown]
  - Nausea [Recovered/Resolved]
